FAERS Safety Report 4513494-8 (Version None)
Quarter: 2004Q4

REPORT INFORMATION
  Report Type: 
  Country: None (occurrence: None)
  Receive Date: 20041130
  Receipt Date: 20041119
  Transmission Date: 20050328
  Serious: Yes (Hospitalization, Other)
  Sender: FDA-Public Use
  Company Number: US-JNJFOC-20041105895

PATIENT
  Sex: Female
  Weight: 83.92 kg

DRUGS (4)
  1. TOPAMAX [Suspect]
     Route: 049
  2. TOPAMAX [Suspect]
     Route: 049
  3. TOPAMAX [Suspect]
     Route: 049
  4. MULTIVITAMIN [Concomitant]

REACTIONS (7)
  - APHASIA [None]
  - DYSPHASIA [None]
  - ESCHERICHIA INFECTION [None]
  - JOINT DISLOCATION [None]
  - POLLAKIURIA [None]
  - ROAD TRAFFIC ACCIDENT [None]
  - UTERINE LEIOMYOMA [None]
